FAERS Safety Report 9283325 (Version 1)
Quarter: 2013Q2

REPORT INFORMATION
  Report Type: Spontaneous
  Country: FR (occurrence: FR)
  Receive Date: 20130510
  Receipt Date: 20130510
  Transmission Date: 20140414
  Serious: Yes (Hospitalization)
  Sender: FDA-Public Use
  Company Number: PHHY2013FR045757

PATIENT
  Age: 46 Year
  Sex: Female
  Weight: 64.7 kg

DRUGS (2)
  1. RIAMET [Suspect]
     Indication: PLASMODIUM FALCIPARUM INFECTION
     Dosage: UNK
     Route: 048
     Dates: start: 20130329, end: 20130331
  2. ARTESUNATE [Suspect]
     Indication: PLASMODIUM FALCIPARUM INFECTION
     Dosage: 3 INFUSIONS
     Route: 042
     Dates: end: 20130329

REACTIONS (2)
  - Hepatocellular injury [Recovered/Resolved]
  - Haemolytic anaemia [Not Recovered/Not Resolved]
